FAERS Safety Report 20107979 (Version 2)
Quarter: 2024Q3

REPORT INFORMATION
  Report Type: Spontaneous
  Country: US (occurrence: US)
  Receive Date: 20211124
  Receipt Date: 20240711
  Transmission Date: 20241016
  Serious: Yes (Hospitalization)
  Sender: PAREXEL
  Company Number: US-AVEO ONCOLOGY-2021-AVEO-US003652

PATIENT

DRUGS (9)
  1. FOTIVDA [Suspect]
     Active Substance: TIVOZANIB HYDROCHLORIDE
     Indication: Renal cell carcinoma
     Dosage: 1.34 MG DAILY  FOR 21 DAYS THEN 7 DAYS OFF
     Route: 048
     Dates: start: 20210912
  2. ONDANSETRON [Concomitant]
     Active Substance: ONDANSETRON
  3. LOPERAMIDE [Concomitant]
     Active Substance: LOPERAMIDE
  4. LISINOPRIL [Concomitant]
     Active Substance: LISINOPRIL
  5. LEVOTHYROXINE [Concomitant]
     Active Substance: LEVOTHYROXINE\LEVOTHYROXINE SODIUM
  6. FLOMAX [Concomitant]
     Active Substance: TAMSULOSIN HYDROCHLORIDE
  7. CREON [Concomitant]
     Active Substance: PANCRELIPASE AMYLASE\PANCRELIPASE LIPASE\PANCRELIPASE PROTEASE
  8. CORTEF [Concomitant]
     Active Substance: HYDROCORTISONE
  9. OXYCODONE [Concomitant]
     Active Substance: OXYCODONE
     Dosage: 1.34 MG, DAILY, 1 CAPSULE DAILY FOR 21 DAYS, 7 DAYS OFF
     Route: 048
     Dates: start: 20210912

REACTIONS (5)
  - Aphonia [Unknown]
  - Dyspnoea [Unknown]
  - Blood pressure increased [Unknown]
  - Dysstasia [Unknown]
  - Chest pain [Unknown]

NARRATIVE: CASE EVENT DATE: 20211019
